FAERS Safety Report 5171591-0 (Version None)
Quarter: 2006Q4

REPORT INFORMATION
  Report Type: 
  Country: None (occurrence: None)
  Receive Date: 20061205
  Receipt Date: 20061121
  Transmission Date: 20070319
  Serious: Yes (Other)
  Sender: FDA-Public Use
  Company Number: 2006PV025652

PATIENT
  Age: 38 Year
  Sex: Female
  Weight: 83.9154 kg

DRUGS (1)
  1. BYETTA [Suspect]
     Indication: INSULIN RESISTANCE
     Dosage: 10 MCG; BID; SC
     Route: 058
     Dates: start: 20061001

REACTIONS (2)
  - FOOD CRAVING [None]
  - HYSTERECTOMY [None]
